FAERS Safety Report 9657056 (Version 1)
Quarter: 2013Q4

REPORT INFORMATION
  Report Type: Spontaneous
  Country: US (occurrence: None)
  Receive Date: 20131029
  Receipt Date: 20131029
  Transmission Date: 20140711
  Serious: Yes (Hospitalization)
  Sender: FDA-Public Use
  Company Number: None

PATIENT
  Age: 73 Year
  Sex: Female
  Weight: 61.2 kg

DRUGS (11)
  1. GABAPENTIN 100MG CAPSULES [Suspect]
     Indication: PAIN
     Route: 048
     Dates: end: 20110411
  2. HYDROMORPHONE [Suspect]
     Indication: PAIN
     Route: 048
     Dates: start: 20110409, end: 20110412
  3. ASPIRIN [Concomitant]
  4. FUROSEMIDE [Concomitant]
  5. HYDRALAZINE [Concomitant]
  6. HEPARIN [Concomitant]
  7. LIDOCAINE PATCH [Concomitant]
  8. LISINOPRIL [Concomitant]
  9. ONDANSETRON [Concomitant]
  10. OXYCONTIN [Concomitant]
  11. POTASSIUM [Concomitant]

REACTIONS (2)
  - Somnolence [None]
  - Unresponsive to stimuli [None]
